FAERS Safety Report 8148267 (Version 3)
Quarter: 2012Q4

REPORT INFORMATION
  Report Type: 
  Country: US (occurrence: US)
  Receive Date: 20110922
  Receipt Date: 20121008
  Transmission Date: 20130627
  Serious: Yes (Hospitalization, Other)
  Sender: FDA-Public Use
  Company Number: US-ASTRAZENECA-2011SE14042

PATIENT
  Age: 90 Year
  Sex: Female

DRUGS (8)
  1. SEROQUEL [Suspect]
     Indication: INSOMNIA
     Route: 048
     Dates: start: 2007, end: 2011
  2. SEROQUEL [Suspect]
     Indication: INSOMNIA
     Route: 048
     Dates: start: 2011
  3. SEROQUEL [Suspect]
     Indication: INSOMNIA
     Route: 048
  4. SEROQUEL [Suspect]
     Indication: INSOMNIA
     Route: 048
  5. ARICEPT [Concomitant]
  6. NAMENDA [Concomitant]
  7. DIABETES CONTROLLED WITH ORAL MEDICATIONS [Concomitant]
     Dates: start: 2005
  8. LIPITOR [Concomitant]

REACTIONS (7)
  - Vaginal haemorrhage [Unknown]
  - Haemorrhage [Unknown]
  - Dementia Alzheimer^s type [Unknown]
  - Hallucination [Unknown]
  - Insomnia [Unknown]
  - Dementia [Unknown]
  - Off label use [Unknown]
